FAERS Safety Report 14721355 (Version 2)
Quarter: 2018Q2

REPORT INFORMATION
  Report Type: Spontaneous
  Country: US (occurrence: US)
  Receive Date: 20180405
  Receipt Date: 20180627
  Transmission Date: 20180711
  Serious: Yes (Other)
  Sender: FDA-Public Use
  Company Number: US-009507513-1804USA000713

PATIENT
  Age: 80 Year
  Sex: Male

DRUGS (3)
  1. ZOSTAVAX [Suspect]
     Active Substance: VARICELLA-ZOSTER VIRUS STRAIN OKA/MERCK LIVE ANTIGEN
     Indication: PROPHYLAXIS
     Dosage: 1 DF
     Dates: start: 20161101, end: 20161101
  2. STERILE DILUENT (WATER) [Suspect]
     Active Substance: WATER
  3. LISINOPRIL. [Concomitant]
     Active Substance: LISINOPRIL

REACTIONS (5)
  - Contusion [Recovering/Resolving]
  - Skin depigmentation [Recovering/Resolving]
  - Eczema [Unknown]
  - Scleroedema [Recovering/Resolving]
  - Skin test negative [Unknown]

NARRATIVE: CASE EVENT DATE: 20161101
